FAERS Safety Report 8033175-6 (Version None)
Quarter: 2012Q1

REPORT INFORMATION
  Report Type: 
  Country: None (occurrence: None)
  Receive Date: 20120110
  Receipt Date: 20120103
  Transmission Date: 20120608
  Serious: Yes (Other)
  Sender: FDA-Public Use
  Company Number: US-BAYER-2011-063095

PATIENT
  Age: 31 Year
  Sex: Female
  Weight: 63.492 kg

DRUGS (3)
  1. YAZ [Suspect]
     Indication: CONTRACEPTION
     Dosage: UNK
     Dates: start: 20081008, end: 20090130
  2. IRON [Concomitant]
     Route: 048
  3. YAZ [Suspect]
     Indication: ACNE

REACTIONS (5)
  - ABDOMINAL PAIN [None]
  - VOMITING [None]
  - CHOLECYSTITIS INFECTIVE [None]
  - CHOLECYSTITIS [None]
  - NAUSEA [None]
